FAERS Safety Report 9473385 (Version 2)
Quarter: 2013Q3

REPORT INFORMATION
  Report Type: Spontaneous
  Country: US (occurrence: US)
  Receive Date: 20130823
  Receipt Date: 20130823
  Transmission Date: 20140515
  Serious: No
  Sender: FDA-Public Use
  Company Number: US-GALDERMA-US-GDP-12414882

PATIENT
  Age: 31 Year
  Sex: Female

DRUGS (2)
  1. METROGEL (METRONIDAZOLE) GEL, 1% [Suspect]
     Route: 061
     Dates: start: 20120823, end: 20120823
  2. TAZORAC [Suspect]
     Route: 061

REACTIONS (2)
  - Skin exfoliation [Recovered/Resolved]
  - Expired drug administered [Recovered/Resolved]
